FAERS Safety Report 19226329 (Version 1)
Quarter: 2021Q2

REPORT INFORMATION
  Report Type: Spontaneous
  Country: CO (occurrence: CO)
  Receive Date: 20210506
  Receipt Date: 20210506
  Transmission Date: 20210717
  Serious: Yes (Other)
  Sender: FDA-Public Use
  Company Number: CO-PFIZER INC-2021474465

PATIENT
  Sex: Female

DRUGS (1)
  1. LYRICA [Suspect]
     Active Substance: PREGABALIN
     Indication: HERPES VIRUS INFECTION
     Dosage: UNK
     Dates: start: 2019

REACTIONS (7)
  - Somnolence [Unknown]
  - Gait disturbance [Unknown]
  - Feeling drunk [Unknown]
  - Neoplasm progression [Unknown]
  - Bone neoplasm [Unknown]
  - Blindness [Unknown]
  - Dizziness [Unknown]

NARRATIVE: CASE EVENT DATE: 202101
